FAERS Safety Report 12486094 (Version 1)
Quarter: 2016Q2

REPORT INFORMATION
  Report Type: Spontaneous
  Country: JP (occurrence: JP)
  Receive Date: 20160621
  Receipt Date: 20160621
  Transmission Date: 20160815
  Serious: Yes (Hospitalization)
  Sender: FDA-Public Use
  Company Number: PHJP2016JP015520

PATIENT
  Age: 41 Year
  Sex: Male

DRUGS (1)
  1. CARBAMAZEPINE. [Suspect]
     Active Substance: CARBAMAZEPINE
     Indication: BIPOLAR DISORDER
     Dosage: UNK
     Route: 048

REACTIONS (10)
  - Lymphadenopathy [Recovering/Resolving]
  - Renal impairment [Recovering/Resolving]
  - Hepatic function abnormal [Recovering/Resolving]
  - Pharyngeal erythema [Recovering/Resolving]
  - Pyrexia [Recovering/Resolving]
  - Chills [Recovering/Resolving]
  - Rash [Recovering/Resolving]
  - Erythema multiforme [Recovering/Resolving]
  - Arthralgia [Recovering/Resolving]
  - Multiple organ dysfunction syndrome [Unknown]
